FAERS Safety Report 7540736-7 (Version None)
Quarter: 2011Q2

REPORT INFORMATION
  Report Type: 
  Country: None (occurrence: None)
  Receive Date: 20110610
  Receipt Date: 20110603
  Transmission Date: 20111010
  Serious: Yes (Hospitalization)
  Sender: FDA-Public Use
  Company Number: US-ROCHE-770580

PATIENT
  Sex: Male
  Weight: 71.3 kg

DRUGS (17)
  1. CISPLATIN [Suspect]
     Indication: OESOPHAGEAL CANCER METASTATIC
     Dosage: FREQUENCY: 2 WEEKS, ONE OFF
     Route: 065
     Dates: start: 20100810, end: 20110330
  2. ONDANSETRON [Concomitant]
  3. IRINOTECAN HYDROCHLORIDE [Suspect]
     Dosage: FREQUENCY 2 ON 1 OFF
     Route: 065
     Dates: end: 20110504
  4. MULTI-VITAMIN [Concomitant]
  5. IRINOTECAN HYDROCHLORIDE [Suspect]
     Indication: OESOPHAGEAL CANCER METASTATIC
     Dosage: FREQUENCY: 2 WEEKS ON 1 OFF.
     Route: 065
     Dates: start: 20100810, end: 20110330
  6. LANSOPRAZOLE [Concomitant]
  7. MG OXIDE [Concomitant]
  8. CISPLATIN [Suspect]
     Dosage: FREQUENCY: 2 WEEKS ON 1 WEEK OFF
     Route: 065
     Dates: end: 20110504
  9. RITALIN [Concomitant]
  10. REMERON [Concomitant]
  11. METOPROLOL SUCCINATE [Concomitant]
     Dosage: ER
  12. OXYCODONE HCL [Concomitant]
  13. SIMVASTATIN [Concomitant]
  14. THIAMINE HCL [Concomitant]
  15. LOMOTIL [Concomitant]
  16. ACETAMINOPHEN [Concomitant]
  17. BEVACIZUMAB [Suspect]
     Indication: OESOPHAGEAL CANCER METASTATIC
     Dosage: WITHHELD TREATMENT
     Route: 042
     Dates: start: 20100810, end: 20110424

REACTIONS (4)
  - PERICARDITIS [None]
  - FAILURE TO THRIVE [None]
  - VOMITING [None]
  - DEHYDRATION [None]
